FAERS Safety Report 11913213 (Version 2)
Quarter: 2016Q3

REPORT INFORMATION
  Report Type: Report from Study
  Country: DE (occurrence: DE)
  Receive Date: 20160113
  Receipt Date: 20160826
  Transmission Date: 20161109
  Serious: Yes (Other)
  Sender: FDA-Public Use
  Company Number: DE-BRISTOL-MYERS SQUIBB COMPANY-BMS-2001-000024

PATIENT
  Age: 27 Year
  Sex: Female

DRUGS (7)
  1. RETROVIR [Suspect]
     Active Substance: ZIDOVUDINE
     Indication: ANTIRETROVIRAL THERAPY
     Dosage: 100 MG, QD
     Route: 042
     Dates: start: 20010417, end: 20010417
  2. FORTOVASE [Suspect]
     Active Substance: SAQUINAVIR
     Indication: ANTIRETROVIRAL THERAPY
     Dosage: 2000 MG, QD
     Route: 048
     Dates: start: 20010316, end: 20010416
  3. EPIVIR [Suspect]
     Active Substance: LAMIVUDINE
     Indication: ANTIRETROVIRAL THERAPY
     Dosage: 150 MG, QD
     Route: 048
     Dates: end: 200010
  4. COMBIVIR [Suspect]
     Active Substance: LAMIVUDINE\ZIDOVUDINE
     Indication: ANTIRETROVIRAL THERAPY
     Dosage: 900 MG, QD
     Route: 048
     Dates: start: 20001216, end: 20010416
  5. STAVUDINE. [Suspect]
     Active Substance: STAVUDINE
     Indication: ANTIRETROVIRAL THERAPY
     Dosage: 80 MG, QD
     Route: 048
     Dates: end: 200010
  6. VIRAMUNE [Suspect]
     Active Substance: NEVIRAPINE
     Indication: ANTIRETROVIRAL THERAPY
     Dosage: 400 MG, QD
     Route: 048
     Dates: end: 200010
  7. NORVIR [Suspect]
     Active Substance: RITONAVIR
     Indication: ANTIRETROVIRAL THERAPY
     Dosage: 200 MG, QD
     Route: 048
     Dates: start: 20010316, end: 20010416

REACTIONS (3)
  - Premature delivery [Unknown]
  - Twin pregnancy [Unknown]
  - Maternal exposure during pregnancy [Recovered/Resolved]

NARRATIVE: CASE EVENT DATE: 20010417
